FAERS Safety Report 4913800-6 (Version None)
Quarter: 2006Q1

REPORT INFORMATION
  Report Type: 
  Country: None (occurrence: None)
  Receive Date: 20060216
  Receipt Date: 20060208
  Transmission Date: 20060701
  Serious: Yes (Other)
  Sender: FDA-Public Use
  Company Number: PHEH2006US02025

PATIENT
  Sex: Male

DRUGS (4)
  1. OXYCODONE [Concomitant]
     Indication: BACK PAIN
  2. OXYTROL [Concomitant]
     Route: 062
  3. HYTRIN [Concomitant]
  4. STALEVO 100 [Suspect]
     Indication: PARKINSON'S DISEASE
     Dosage: 300 MG, 6X DAILY
     Route: 048
     Dates: start: 20030101

REACTIONS (1)
  - THORACIC VERTEBRAL FRACTURE [None]
